FAERS Safety Report 24890394 (Version 1)
Quarter: 2025Q1

REPORT INFORMATION
  Report Type: Spontaneous
  Country: FR (occurrence: FR)
  Receive Date: 20250127
  Receipt Date: 20250127
  Transmission Date: 20250409
  Serious: Yes (Other)
  Sender: JOHNSON AND JOHNSON
  Company Number: FR-JNJFOC-20250162453

PATIENT

DRUGS (2)
  1. ERLEADA [Suspect]
     Active Substance: APALUTAMIDE
     Indication: Product used for unknown indication
     Route: 065
  2. MINERAL OIL [Suspect]
     Active Substance: MINERAL OIL

REACTIONS (3)
  - Rectal haemorrhage [Unknown]
  - Constipation [Unknown]
  - Haemorrhoids [Unknown]
